FAERS Safety Report 14492687 (Version 1)
Quarter: 2018Q1

REPORT INFORMATION
  Report Type: Spontaneous
  Country: US (occurrence: US)
  Receive Date: 20180206
  Receipt Date: 20180206
  Transmission Date: 20180509
  Serious: No
  Sender: FDA-Public Use
  Company Number: US-JNJFOC-20171127115

PATIENT
  Age: 42 Year
  Sex: Female

DRUGS (2)
  1. PEPCID [Suspect]
     Active Substance: FAMOTIDINE
     Route: 065
  2. PEPCID [Suspect]
     Active Substance: FAMOTIDINE
     Indication: PRODUCT USED FOR UNKNOWN INDICATION
     Route: 065

REACTIONS (1)
  - Adverse event [Unknown]
